FAERS Safety Report 4752729-3 (Version None)
Quarter: 2005Q3

REPORT INFORMATION
  Report Type: 
  Country: None (occurrence: None)
  Receive Date: 20050823
  Receipt Date: 20050602
  Transmission Date: 20060218
  Serious: Yes (Other)
  Sender: FDA-Public Use
  Company Number: 2005084945

PATIENT
  Age: 78 Year
  Sex: Female

DRUGS (7)
  1. NORVASC [Suspect]
     Indication: HYPERTENSION
     Dosage: 5 MG (5 MG, QD INTERVAL: EVERY DAY), ORAL
     Route: 048
     Dates: start: 20050401
  2. LASIX [Concomitant]
  3. ANTIVERT [Concomitant]
  4. CALCIUM (CALCIUM) [Concomitant]
  5. NEXIUM [Concomitant]
  6. OCUVITE (ASCORBIC ACID, RETINOL, TOCOPHEROL) [Concomitant]
  7. AVALIDE [Concomitant]

REACTIONS (4)
  - ABDOMINAL PAIN [None]
  - DIARRHOEA [None]
  - HYPERHIDROSIS [None]
  - OEDEMA [None]
